FAERS Safety Report 11801518 (Version 1)
Quarter: 2015Q4

REPORT INFORMATION
  Report Type: Report from Study
  Country: JP (occurrence: JP)
  Receive Date: 20151204
  Receipt Date: 20151204
  Transmission Date: 20160305
  Serious: Yes (Hospitalization, Other)
  Sender: FDA-Public Use
  Company Number: JP-009507513-1404JPN011346

PATIENT
  Age: 24 Year
  Sex: Female
  Weight: 54 kg

DRUGS (19)
  1. AROGLYCEM [Suspect]
     Active Substance: DIAZOXIDE
     Dosage: 125 MG IN THE MORNING AND 250 MG IN THE EVENING
     Route: 048
     Dates: start: 20091014, end: 20091014
  2. GLUCOSE [Concomitant]
     Active Substance: DEXTROSE
     Dosage: 1000 ML, QD, DIVIDED DOSE FREQUENCY UNKNOWN
     Route: 042
     Dates: start: 20091007, end: 20091008
  3. AROGLYCEM [Suspect]
     Active Substance: DIAZOXIDE
     Dosage: 250 MG, BID
     Route: 048
     Dates: start: 20091015, end: 20091015
  4. GLUCOSE [Concomitant]
     Active Substance: DEXTROSE
     Dosage: 40 ML, QD, DIVIDED DOSE FREQUENCY UNKNOWN
     Route: 042
     Dates: start: 20091006, end: 20091006
  5. GLUCOSE [Concomitant]
     Active Substance: DEXTROSE
     Dosage: 40 ML, QD, DIVIDED DOSE FREQUENCY UNKNOWN (FORMULATION REPORTED AS ^POR^)
     Route: 048
     Dates: start: 20091006, end: 20091006
  6. GLUCOSE [Concomitant]
     Active Substance: DEXTROSE
     Dosage: 1500 ML, QD, DIVIDED DOSE FREQUENCY UNKNOWN
     Route: 042
     Dates: start: 20091009, end: 20091009
  7. GLUCOSE [Concomitant]
     Active Substance: DEXTROSE
     Dosage: 500 - 1500 ML/DAY
     Route: 042
     Dates: start: 20091007, end: 20091022
  8. SANDOSTATIN [Concomitant]
     Active Substance: OCTREOTIDE ACETATE
     Indication: HYPOGLYCAEMIA
     Dosage: 100 MICROGRAM, QD, DIVIDED DOSE FREQUENCY UNKNOWN
     Route: 058
     Dates: start: 20091009, end: 20091009
  9. AROGLYCEM [Suspect]
     Active Substance: DIAZOXIDE
     Indication: HYPOGLYCAEMIA
     Dosage: 125 MG, BID
     Route: 048
     Dates: start: 20091010, end: 20091013
  10. AROGLYCEM [Suspect]
     Active Substance: DIAZOXIDE
     Dosage: 250 MG IN THE MORNING AND 375 MG IN THE EVENING
     Route: 048
     Dates: start: 20091016, end: 20091021
  11. GLUCOSE [Concomitant]
     Active Substance: DEXTROSE
     Dosage: 0-20 G/DAY
     Route: 048
     Dates: start: 20091010, end: 20091119
  12. PURSENNID [Concomitant]
     Active Substance: SENNOSIDES A AND B
     Indication: CONSTIPATION
     Dosage: 24 MG, QD, DIVIDED DOSE FREQUENCY UNKNOWN
     Route: 048
     Dates: start: 20091017, end: 20091102
  13. GLUCAGON. [Concomitant]
     Active Substance: GLUCAGON
     Indication: HYPOGLYCAEMIA
     Dosage: 1 MG, QD, DIVIDED DOSE FREQUENCY UNKNOWN
     Route: 042
     Dates: start: 20091006, end: 20091006
  14. PRIMPERAN [Concomitant]
     Active Substance: METOCLOPRAMIDE HYDROCHLORIDE
     Indication: NAUSEA
     Dosage: 10 MG, QD, DIVIDED DOSE FREQUENCY UNKNOWN
     Route: 042
     Dates: start: 20091017, end: 20091021
  15. VITAMEDIN INTRAVENOUS [Concomitant]
     Active Substance: CYANOCOBALAMIN\PYRIDOXINE HYDROCHLORIDE\THIAMINE
     Indication: HYPOGLYCAEMIA
     Dosage: 1 DF, QD, DIVIDED DOSE FREQUENCY UNKNOWN
     Route: 042
     Dates: start: 20091005, end: 20091005
  16. GLUCOSE [Concomitant]
     Active Substance: DEXTROSE
     Indication: HYPOGLYCAEMIA
     Dosage: 20 ML, QD, DIVIDED DOSE FREQUENCY UNKNOWN
     Route: 042
     Dates: start: 20091005, end: 20091005
  17. LACTEC [Concomitant]
     Active Substance: CALCIUM CHLORIDE ANHYDROUS\POTASSIUM CHLORIDE\SODIUM CHLORIDE\SODIUM LACTATE
     Indication: HYPOGLYCAEMIA
     Dosage: 500 ML, QD, DIVIDED DOSE FREQUENCY UNKNOWN
     Route: 042
     Dates: start: 20091005, end: 20091005
  18. GLUCOSE [Concomitant]
     Active Substance: DEXTROSE
     Indication: HYPOGLYCAEMIA
     Dosage: 20 G, QD (FORMULATION REPORTED AS ^POR^), DIVIDED DOSE FREQUENCY UNKNOWN
     Route: 048
     Dates: start: 20091009, end: 20091009
  19. GLUCOSE [Concomitant]
     Active Substance: DEXTROSE
     Indication: HYPOGLYCAEMIA
     Dosage: 20 ML, QD, DIVIDED DOSE FREQUENCY UNKNOWN (FORMULATION REPORTED AS ^POR^)
     Route: 048
     Dates: start: 20091005, end: 20091005

REACTIONS (3)
  - Pyrexia [Recovered/Resolved]
  - Liver disorder [Recovered/Resolved]
  - Pancytopenia [Recovered/Resolved]

NARRATIVE: CASE EVENT DATE: 20091017
